FAERS Safety Report 22380057 (Version 1)
Quarter: 2023Q2

REPORT INFORMATION
  Report Type: Spontaneous
  Country: JP (occurrence: JP)
  Receive Date: 20230529
  Receipt Date: 20230529
  Transmission Date: 20230722
  Serious: Yes (Other)
  Sender: FDA-Public Use
  Company Number: JP-APIL-2315681US

PATIENT
  Sex: Male

DRUGS (1)
  1. ASENAPINE MALEATE [Suspect]
     Active Substance: ASENAPINE MALEATE
     Indication: Bipolar I disorder
     Dosage: 10 MG
     Route: 060

REACTIONS (2)
  - Rhabdomyolysis [Unknown]
  - Off label use [Unknown]
